FAERS Safety Report 7542207-0 (Version None)
Quarter: 2011Q2

REPORT INFORMATION
  Report Type: 
  Country: None (occurrence: None)
  Receive Date: 20110524
  Receipt Date: 20110308
  Transmission Date: 20111010
  Serious: No
  Sender: FDA-Public Use
  Company Number: 028956

PATIENT
  Sex: Male
  Weight: 98.9 kg

DRUGS (2)
  1. MULTI-VITAMINS [Concomitant]
  2. CIMZIA [Suspect]
     Indication: CROHN'S DISEASE
     Dosage: (400 MG 1X/MONTH SUBCUTANEOUS)
     Route: 058
     Dates: start: 20110115

REACTIONS (2)
  - DRUG INEFFECTIVE [None]
  - ABDOMINAL PAIN [None]
